FAERS Safety Report 7364691-8 (Version None)
Quarter: 2011Q1

REPORT INFORMATION
  Report Type: 
  Country: None (occurrence: None)
  Receive Date: 20110321
  Receipt Date: 20110314
  Transmission Date: 20110831
  Serious: Yes (Other)
  Sender: FDA-Public Use
  Company Number: GB-GENZYME-CLOF-1001489

PATIENT
  Sex: Male

DRUGS (1)
  1. EVOLTRA [Suspect]
     Indication: ACUTE LEUKAEMIA
     Dosage: 20 MG/M2, QDX5
     Route: 042
     Dates: start: 20110126, end: 20110130

REACTIONS (1)
  - THROMBOCYTOPENIA [None]
